FAERS Safety Report 4835783-X (Version None)
Quarter: 2005Q4

REPORT INFORMATION
  Report Type: 
  Country: None (occurrence: None)
  Receive Date: 20051123
  Receipt Date: 20051116
  Transmission Date: 20060501
  Serious: Yes (Other)
  Sender: FDA-Public Use
  Company Number: BR-GLAXOSMITHKLINE-A0583125A

PATIENT
  Age: 56 Year
  Sex: Female
  Weight: 60 kg

DRUGS (2)
  1. ZYBAN [Suspect]
     Route: 048
     Dates: start: 20051104
  2. LEXOTAN [Concomitant]
     Route: 048
     Dates: start: 20051108

REACTIONS (8)
  - AGGRESSION [None]
  - ANXIETY [None]
  - CRYING [None]
  - DIZZINESS [None]
  - EMOTIONAL DISTRESS [None]
  - FEELING HOT [None]
  - HEADACHE [None]
  - PAIN [None]
